FAERS Safety Report 6385670-3 (Version None)
Quarter: 2009Q4

REPORT INFORMATION
  Report Type: 
  Country: None (occurrence: None)
  Receive Date: 20091002
  Receipt Date: 20081009
  Transmission Date: 20100525
  Serious: No
  Sender: FDA-Public Use
  Company Number: US-ASTRAZENECA-2008UW22274

PATIENT
  Sex: Female

DRUGS (3)
  1. ARIMIDEX [Suspect]
     Route: 048
     Dates: start: 20080101, end: 20080930
  2. IBUPROFEN [Concomitant]
  3. TYLENOL (CAPLET) [Concomitant]

REACTIONS (6)
  - ARTHRALGIA [None]
  - MOOD SWINGS [None]
  - VAGINAL DISCHARGE [None]
  - VAGINAL ODOUR [None]
  - VULVOVAGINAL DISCOMFORT [None]
  - VULVOVAGINAL DRYNESS [None]
